FAERS Safety Report 12577837 (Version 1)
Quarter: 2016Q3

REPORT INFORMATION
  Report Type: Report from Study
  Country: ID (occurrence: ID)
  Receive Date: 20160721
  Receipt Date: 20160721
  Transmission Date: 20161109
  Serious: Yes (Death, Hospitalization)
  Sender: FDA-Public Use
  Company Number: ID-ROCHE-1798020

PATIENT
  Age: 67 Year
  Sex: Female

DRUGS (1)
  1. BONDRONAT [Suspect]
     Active Substance: IBANDRONIC ACID
     Indication: PRODUCT USED FOR UNKNOWN INDICATION
     Route: 065

REACTIONS (1)
  - Dehydration [Fatal]
